FAERS Safety Report 17521143 (Version 2)
Quarter: 2020Q1

REPORT INFORMATION
  Report Type: Spontaneous
  Country: TW (occurrence: TW)
  Receive Date: 20200310
  Receipt Date: 20200312
  Transmission Date: 20200409
  Serious: Yes (Other)
  Sender: FDA-Public Use
  Company Number: TW-PFIZER INC-2011288451

PATIENT
  Age: 45 Year
  Sex: Male

DRUGS (7)
  1. FLUOROURACIL. [Concomitant]
     Active Substance: FLUOROURACIL
     Indication: METASTASES TO LUNG
     Dosage: 2400 MG/M2, UNK, (46-HOUR INFUSION)
     Route: 042
  2. GRANISETRON [Concomitant]
     Active Substance: GRANISETRON
     Dosage: 3 MG, UNK
  3. OXALIPLATIN. [Suspect]
     Active Substance: OXALIPLATIN
     Indication: METASTASES TO LUNG
     Dosage: 80 MG/M2, UNK, (DAY 1)
  4. CALCIUM FOLINATE [Concomitant]
     Active Substance: LEUCOVORIN CALCIUM
     Indication: METASTASES TO LUNG
     Dosage: 100 MG/M2, UNK, (DAY 1)
     Route: 042
  5. DEXAMETHASONE. [Concomitant]
     Active Substance: DEXAMETHASONE
     Dosage: 10 MG, UNK
  6. HYDROCORTISONE. [Concomitant]
     Active Substance: HYDROCORTISONE
     Dosage: UNK
  7. DIPHENHYDRAMINE. [Concomitant]
     Active Substance: DIPHENHYDRAMINE
     Dosage: UNK

REACTIONS (6)
  - Cardiotoxicity [Recovered/Resolved]
  - Hypersensitivity [Recovered/Resolved]
  - Arteriospasm coronary [Recovered/Resolved]
  - Kounis syndrome [Recovered/Resolved]
  - Prinzmetal angina [Recovered/Resolved]
  - Electrocardiogram ST segment elevation [Recovered/Resolved]
